FAERS Safety Report 15992498 (Version 1)
Quarter: 2019Q1

REPORT INFORMATION
  Report Type: Spontaneous
  Country: JP (occurrence: JP)
  Receive Date: 20190221
  Receipt Date: 20190221
  Transmission Date: 20190418
  Serious: Yes (Other)
  Sender: FDA-Public Use
  Company Number: JP-PFM-2019-01876

PATIENT

DRUGS (1)
  1. VINORELBINE [Suspect]
     Active Substance: VINORELBINE\VINORELBINE TARTRATE
     Indication: ADENOSQUAMOUS CELL LUNG CANCER
     Dosage: 10 MG/M2, ON DAY 1 THEN EVERY 7 DAYS
     Route: 065

REACTIONS (2)
  - Lung neoplasm malignant [Unknown]
  - Radiation pneumonitis [Unknown]
